FAERS Safety Report 6782558-0 (Version None)
Quarter: 2010Q2

REPORT INFORMATION
  Report Type: 
  Country: None (occurrence: None)
  Receive Date: 20100621
  Receipt Date: 20100602
  Transmission Date: 20101027
  Serious: Yes (Other)
  Sender: FDA-Public Use
  Company Number: JP-PFIZER INC-2010063816

PATIENT
  Age: 76 Year
  Sex: Female

DRUGS (2)
  1. EPIRUBICIN HYDROCHLORIDE [Suspect]
     Indication: PLASMACYTOMA
     Dosage: 30 MG, UNK
     Route: 025
  2. LIPIODOL [Suspect]
     Indication: PLASMACYTOMA
     Dosage: 6 ML, UNK
     Route: 025

REACTIONS (1)
  - ABDOMINAL ABSCESS [None]
